FAERS Safety Report 13411347 (Version 2)
Quarter: 2017Q2

REPORT INFORMATION
  Report Type: Spontaneous
  Country: US (occurrence: US)
  Receive Date: 20170406
  Receipt Date: 20170424
  Transmission Date: 20170830
  Serious: Yes (Hospitalization)
  Sender: FDA-Public Use
  Company Number: US-JNJFOC-20170302751

PATIENT
  Sex: Female
  Weight: 77.11 kg

DRUGS (1)
  1. RISPERDAL [Suspect]
     Active Substance: RISPERIDONE
     Indication: SCHIZOPHRENIA
     Route: 065
     Dates: start: 2007, end: 2010

REACTIONS (8)
  - Drug ineffective [Unknown]
  - Treatment noncompliance [Unknown]
  - Incorrect dose administered [Unknown]
  - Dyspnoea [Unknown]
  - Wheezing [Unknown]
  - Off label use [Unknown]
  - Oxygen saturation decreased [Unknown]
  - Productive cough [Unknown]

NARRATIVE: CASE EVENT DATE: 2008
